FAERS Safety Report 8314465 (Version 6)
Quarter: 2012Q4

REPORT INFORMATION
  Report Type: 
  Country: US (occurrence: US)
  Receive Date: 20111228
  Receipt Date: 20121213
  Transmission Date: 20130627
  Serious: Yes (Hospitalization, Other)
  Sender: FDA-Public Use
  Company Number: US-ASTRAZENECA-2011SE76991

PATIENT
  Age: 63 Year
  Sex: Female
  Weight: 75.8 kg

DRUGS (12)
  1. NEXIUM [Suspect]
     Indication: DIARRHOEA
     Route: 048
  2. BRILINTA [Suspect]
     Dosage: DAILY
     Route: 048
     Dates: start: 201112
  3. LEVOTHYROXINE [Concomitant]
     Indication: THYROID DISORDER
     Route: 048
  4. METFORMIN [Concomitant]
     Indication: DIABETES MELLITUS
     Route: 048
  5. CARVETILOL [Concomitant]
     Route: 048
  6. AMLODIPINE [Concomitant]
     Route: 048
  7. ASPIRIN [Concomitant]
     Indication: STENT PLACEMENT
     Route: 048
  8. CLARITIN [Concomitant]
     Dosage: DAILY
     Route: 048
  9. SPIRIVA [Concomitant]
     Route: 055
  10. PROVENTIL [Concomitant]
     Dosage: AS REQUIRED
     Route: 055
  11. BENEDRYL [Concomitant]
  12. TYLENOL [Concomitant]
     Indication: PAIN
     Dosage: AT NIGHT

REACTIONS (16)
  - Coronary artery occlusion [Unknown]
  - Cataract [Unknown]
  - Ear haemorrhage [Unknown]
  - Chronic obstructive pulmonary disease [Unknown]
  - Eczema [Unknown]
  - Burning sensation [Unknown]
  - Chest pain [Recovered/Resolved]
  - Low density lipoprotein increased [Unknown]
  - Bone pain [Unknown]
  - Blood blister [Unknown]
  - Dyspnoea [Unknown]
  - Eye swelling [Unknown]
  - Rash generalised [Unknown]
  - Swelling face [Unknown]
  - Reaction to drug excipients [Unknown]
  - Off label use [Unknown]
